FAERS Safety Report 8305559-X (Version None)
Quarter: 2012Q2

REPORT INFORMATION
  Report Type: 
  Country: None (occurrence: None)
  Receive Date: 20120423
  Receipt Date: 20120411
  Transmission Date: 20120825
  Serious: Yes (Hospitalization, Disabling, Other)
  Sender: FDA-Public Use
  Company Number: US-MERCK-1204USA01811

PATIENT
  Sex: Female
  Weight: 51 kg

DRUGS (5)
  1. ACTONEL [Suspect]
     Indication: OSTEOPENIA
     Route: 048
     Dates: start: 20080228, end: 20100913
  2. FOSAMAX PLUS D [Suspect]
     Indication: OSTEOPENIA
     Route: 048
     Dates: start: 20071023, end: 20080227
  3. FOSAMAX [Suspect]
     Indication: OSTEOPENIA
     Route: 048
     Dates: start: 20031006
  4. ACTONEL [Suspect]
     Route: 048
     Dates: start: 20020903, end: 20031001
  5. BONIVA [Suspect]
     Route: 065

REACTIONS (37)
  - IMPLANT TISSUE NECROSIS [None]
  - DEVICE RELATED INFECTION [None]
  - DEVICE FAILURE [None]
  - MUSCLE STRAIN [None]
  - CELLULITIS ORBITAL [None]
  - NASOPHARYNGITIS [None]
  - BLEPHARITIS [None]
  - INFECTION [None]
  - ELECTROCARDIOGRAM ST SEGMENT DEPRESSION [None]
  - ANXIETY [None]
  - DENTAL CARIES [None]
  - TOOTH DISORDER [None]
  - DENTAL PLAQUE [None]
  - DEPRESSION [None]
  - HYPERTENSION [None]
  - ADJUSTMENT DISORDER [None]
  - BRONCHITIS [None]
  - OSTEONECROSIS OF JAW [None]
  - HYPERLIPIDAEMIA [None]
  - TENDONITIS [None]
  - PERIPHERAL ARTERIAL OCCLUSIVE DISEASE [None]
  - LIGAMENT SPRAIN [None]
  - AORTIC ANEURYSM [None]
  - SKIN DISORDER [None]
  - PERIODONTAL DISEASE [None]
  - CHEST PAIN [None]
  - CONJUNCTIVITIS [None]
  - DEAFNESS [None]
  - SINUSITIS [None]
  - OSTEOARTHRITIS [None]
  - CORONARY ARTERY DISEASE [None]
  - OSTEOPOROSIS [None]
  - IMPAIRED HEALING [None]
  - GINGIVAL ABSCESS [None]
  - UPPER RESPIRATORY TRACT INFECTION [None]
  - SEBORRHOEA [None]
  - CARDIAC DISORDER [None]
